FAERS Safety Report 25517642 (Version 3)
Quarter: 2025Q3

REPORT INFORMATION
  Report Type: Spontaneous
  Country: CA (occurrence: CA)
  Receive Date: 20250704
  Receipt Date: 20250820
  Transmission Date: 20251020
  Serious: Yes (Hospitalization, Other)
  Sender: ALEXION PHARMACEUTICALS
  Company Number: CA-SA-2025SA177724

PATIENT
  Sex: Male
  Weight: 3.7 kg

DRUGS (1)
  1. NIRSEVIMAB [Suspect]
     Active Substance: NIRSEVIMAB
     Dates: start: 20241122, end: 20241122

REACTIONS (6)
  - Respiratory arrest [Recovered/Resolved]
  - Bradycardia [Recovered/Resolved]
  - Hypotonia [Recovered/Resolved]
  - Obstructive airways disorder [Recovered/Resolved]
  - Pallor [Recovered/Resolved]
  - Oxygen therapy [Recovered/Resolved]
